FAERS Safety Report 4841840-4 (Version None)
Quarter: 2005Q4

REPORT INFORMATION
  Report Type: 
  Country: None (occurrence: None)
  Receive Date: 20051130
  Receipt Date: 20051116
  Transmission Date: 20060501
  Serious: Yes (Hospitalization, Other)
  Sender: FDA-Public Use
  Company Number: PHEH2005US12619

PATIENT
  Age: 69 Year
  Sex: Male

DRUGS (4)
  1. LOTREL [Suspect]
     Indication: HYPERTENSION
     Route: 048
     Dates: end: 20050201
  2. LOTREL [Suspect]
     Dosage: 5/20MG, QD
     Route: 048
     Dates: start: 20050601
  3. COMPAZINE [Suspect]
     Indication: NAUSEA
  4. BENADRYL [Suspect]

REACTIONS (9)
  - BLOOD PRESSURE DECREASED [None]
  - CONFUSIONAL STATE [None]
  - DEHYDRATION [None]
  - DYSTONIA [None]
  - EXTRAPYRAMIDAL DISORDER [None]
  - GAIT DISTURBANCE [None]
  - HALLUCINATION [None]
  - PARKINSONISM [None]
  - WEIGHT DECREASED [None]
